FAERS Safety Report 9526388 (Version 2)
Quarter: 2013Q3

REPORT INFORMATION
  Report Type: Spontaneous
  Country: IT (occurrence: IT)
  Receive Date: 20130916
  Receipt Date: 20130924
  Transmission Date: 20140515
  Serious: Yes (Hospitalization, Other)
  Sender: FDA-Public Use
  Company Number: IT-ELI_LILLY_AND_COMPANY-IT201309002848

PATIENT
  Age: 75 Year
  Sex: Female

DRUGS (3)
  1. HUMALOG LISPRO [Suspect]
     Dosage: 3 ML, UNK
     Route: 058
     Dates: start: 20130810, end: 20130810
  2. NITROGLYCERIN [Concomitant]
     Route: 062
  3. ACETYLSALICYLIC ACID [Concomitant]

REACTIONS (3)
  - Suicide attempt [Recovering/Resolving]
  - Hypoglycaemia [Recovering/Resolving]
  - Incorrect dose administered [Recovering/Resolving]
